FAERS Safety Report 16156053 (Version 1)
Quarter: 2019Q2

REPORT INFORMATION
  Report Type: Spontaneous
  Country: JP (occurrence: JP)
  Receive Date: 20190404
  Receipt Date: 20190404
  Transmission Date: 20190711
  Serious: Yes (Other)
  Sender: FDA-Public Use
  Company Number: JP-EDENBRIDGE PHARMACEUTICALS, LLC-JP-2019EDE000034

PATIENT
  Age: 40 Year
  Sex: Female

DRUGS (1)
  1. PREDNISOLONE SODIUM PHOSPHATE. [Suspect]
     Active Substance: PREDNISOLONE SODIUM PHOSPHATE
     Indication: MIXED CONNECTIVE TISSUE DISEASE
     Dosage: 9 MG, QD

REACTIONS (2)
  - Exposure during pregnancy [Unknown]
  - Amniotic cavity infection [Unknown]
